FAERS Safety Report 11054293 (Version 1)
Quarter: 2015Q2

REPORT INFORMATION
  Report Type: Spontaneous
  Country: US (occurrence: None)
  Receive Date: 20150420
  Receipt Date: 20150420
  Transmission Date: 20150821
  Serious: Yes (Other)
  Sender: FDA-Public Use
  Company Number: US-DEXPHARM-20150225

PATIENT
  Age: 57 Year
  Sex: Female
  Weight: 67.57 kg

DRUGS (4)
  1. OMEPRAZOLE DELAYED RELEASE [Suspect]
     Active Substance: OMEPRAZOLE
     Indication: GASTROOESOPHAGEAL REFLUX DISEASE
     Route: 048
     Dates: start: 20150326, end: 20150403
  2. TOPROL XL [Concomitant]
     Active Substance: METOPROLOL SUCCINATE
  3. OMEPRAZOLE DELAYED RELEASE [Suspect]
     Active Substance: OMEPRAZOLE
     Indication: REFLUX LARYNGITIS
     Route: 048
     Dates: start: 20150328, end: 20150403
  4. SYNTHROID [Concomitant]
     Active Substance: LEVOTHYROXINE SODIUM

REACTIONS (20)
  - Groin pain [None]
  - Feeling abnormal [None]
  - Burning sensation [None]
  - Insomnia [None]
  - Diarrhoea [None]
  - Muscular weakness [None]
  - Arthralgia [None]
  - Anxiety [None]
  - Neck pain [None]
  - Vision blurred [None]
  - Feeling hot [None]
  - Spinal pain [None]
  - Dyspnoea [None]
  - Dizziness [None]
  - Tremor [None]
  - Back pain [None]
  - Bone pain [None]
  - Blepharospasm [None]
  - Respiratory rate increased [None]
  - Irritability [None]

NARRATIVE: CASE EVENT DATE: 20150326
